FAERS Safety Report 7931642-4 (Version None)
Quarter: 2011Q4

REPORT INFORMATION
  Report Type: 
  Country: None (occurrence: None)
  Receive Date: 20111121
  Receipt Date: 20111110
  Transmission Date: 20120403
  Serious: Yes (Other)
  Sender: FDA-Public Use
  Company Number: PHFR2011IE05179

PATIENT
  Sex: Female

DRUGS (11)
  1. METHADONE HCL [Concomitant]
     Dosage: UNK
  2. PROPRANOLOL [Concomitant]
     Dosage: UNK
  3. CLOZARIL [Suspect]
     Indication: SCHIZOPHRENIA
     Route: 048
     Dates: start: 20101105, end: 20110902
  4. LITHIUM CARBONATE [Concomitant]
     Dates: start: 20110830
  5. CHLORPROMAZINE [Concomitant]
  6. ARIPIPRAZOLE [Concomitant]
  7. ALBUTEROL SULFATE AUTOHALER [Concomitant]
     Dosage: UNK
  8. CAPTIN [Concomitant]
     Dosage: UNK UKN, UNK
  9. VALPROATE SODIUM [Concomitant]
  10. IMIQUIMOD [Concomitant]
     Dosage: UNK  THRICE PER WEEK
     Route: 061
  11. DOXYCLIN [Concomitant]
     Dosage: UNK

REACTIONS (4)
  - DIFFERENTIAL WHITE BLOOD CELL COUNT ABNORMAL [None]
  - EPILEPSY [None]
  - NEUTROPHIL COUNT DECREASED [None]
  - ANOGENITAL WARTS [None]
